FAERS Safety Report 6104612-9 (Version None)
Quarter: 2009Q1

REPORT INFORMATION
  Report Type: 
  Country: None (occurrence: None)
  Receive Date: 20090305
  Receipt Date: 20090218
  Transmission Date: 20090719
  Serious: Yes (Other)
  Sender: FDA-Public Use
  Company Number: FR-GENENTECH-278286

PATIENT
  Age: 74 Year
  Sex: Male

DRUGS (2)
  1. ACTIVASE [Suspect]
     Indication: EMBOLIC STROKE
     Dosage: 0.9 MG/KG, UNK
     Route: 042
  2. TENECTEPLASE [Suspect]
     Indication: EMBOLIC STROKE
     Dosage: 0.4 MG/KG, SINGLE
     Route: 040

REACTIONS (3)
  - DRUG INEFFECTIVE [None]
  - MUSCLE RIGIDITY [None]
  - OPHTHALMOPLEGIA [None]
